FAERS Safety Report 8607639 (Version 3)
Quarter: 2013Q2

REPORT INFORMATION
  Report Type: Spontaneous
  Country: US (occurrence: US)
  Receive Date: 20120611
  Receipt Date: 20130625
  Transmission Date: 20140414
  Serious: No
  Sender: FDA-Public Use
  Company Number: US-ASTELLAS-2012US005200

PATIENT
  Sex: 0

DRUGS (3)
  1. VESICARE [Suspect]
     Indication: HYPERTONIC BLADDER
     Dosage: 5 MG, UNKNOWN/D
     Route: 048
     Dates: start: 20120329, end: 201204
  2. VESICARE [Suspect]
     Dosage: 10 MG, UNKNOWN/D
     Route: 048
     Dates: start: 20120329, end: 201204
  3. ENABLEX                            /01760401/ [Concomitant]
     Dosage: UNK
     Route: 048
     Dates: start: 201204, end: 20120629

REACTIONS (1)
  - Drug ineffective [Unknown]
